FAERS Safety Report 23798371 (Version 1)
Quarter: 2024Q2

REPORT INFORMATION
  Report Type: Spontaneous
  Country: CN (occurrence: CN)
  Receive Date: 20240430
  Receipt Date: 20240430
  Transmission Date: 20240716
  Serious: Yes (Hospitalization, Other)
  Sender: FDA-Public Use
  Company Number: None

PATIENT
  Age: 51 Year
  Sex: Female
  Weight: 49 kg

DRUGS (4)
  1. CYCLOPHOSPHAMIDE [Suspect]
     Active Substance: CYCLOPHOSPHAMIDE
     Indication: Breast cancer female
     Dosage: 0.9G, ONE TIME IN ONE DAY, DILUTED WITH 40ML, 0.9% SODIUM CHLORIDE, AS APART OF TC REGIMEN, SECOND C
     Route: 042
     Dates: start: 20240312, end: 20240312
  2. SODIUM CHLORIDE [Suspect]
     Active Substance: SODIUM CHLORIDE
     Indication: Medication dilution
     Dosage: 40ML, ONE TIME IN ONE DAY, USED TO DILUTE 0.9G CYCLOPHOSPHAMIDE, AS APART OF TC REGIMEN, SECOND COUR
     Route: 042
     Dates: start: 20240312, end: 20240312
  3. SODIUM CHLORIDE [Suspect]
     Active Substance: SODIUM CHLORIDE
     Dosage: 350ML, ONE TIME IN ONE DAY, USED TO DILUTE 113MG DOCETAXEL, AS APART OF TC REGIMEN, SECOND COURSE
     Route: 041
     Dates: start: 20240312, end: 20240312
  4. DOCETAXEL [Suspect]
     Active Substance: DOCETAXEL\DOCETAXEL ANHYDROUS
     Indication: Breast cancer female
     Dosage: 113 MG, ONE TIME IN ONE DAY, DILUTED WITH 350ML, 0.9% SODIUM CHLORIDE, AS APART OF TC REGIMEN, SECON
     Route: 041
     Dates: start: 20240312, end: 20240312

REACTIONS (2)
  - Liver injury [Recovered/Resolved]
  - Hepatic enzyme increased [Recovered/Resolved]

NARRATIVE: CASE EVENT DATE: 20240320
